FAERS Safety Report 4896906-X (Version None)
Quarter: 2006Q1

REPORT INFORMATION
  Report Type: 
  Country: None (occurrence: None)
  Receive Date: 20060127
  Receipt Date: 20060117
  Transmission Date: 20060701
  Serious: Yes (Hospitalization)
  Sender: FDA-Public Use
  Company Number: CA200601002886

PATIENT
  Age: 50 Year
  Sex: Male

DRUGS (1)
  1. STRATTERA (ATOMOXETINE HYDROCHLORIDE UNKNOWN FORMULATION) [Suspect]
     Dosage: SEE IMAGE

REACTIONS (2)
  - INTESTINAL FUNCTIONAL DISORDER [None]
  - URINARY TRACT OBSTRUCTION [None]
